FAERS Safety Report 25315010 (Version 3)
Quarter: 2025Q3

REPORT INFORMATION
  Report Type: Spontaneous
  Country: US (occurrence: US)
  Receive Date: 20250514
  Receipt Date: 20250904
  Transmission Date: 20251020
  Serious: Yes (Life-Threatening, Other)
  Sender: SANOFI AVENTIS
  Company Number: US-SANOFI-02518533

PATIENT
  Sex: Female

DRUGS (1)
  1. PLAVIX [Suspect]
     Active Substance: CLOPIDOGREL BISULFATE
     Dates: start: 20240803

REACTIONS (14)
  - Gastrointestinal haemorrhage [Unknown]
  - Melaena [Unknown]
  - Thrombotic thrombocytopenic purpura [Unknown]
  - Pain in extremity [Not Recovered/Not Resolved]
  - Gait inability [Unknown]
  - Joint swelling [Unknown]
  - Thrombosis [Unknown]
  - Contusion [Unknown]
  - Peripheral swelling [Recovering/Resolving]
  - Vascular rupture [Unknown]
  - Liver injury [Unknown]
  - Eye haemorrhage [Unknown]
  - Blood pressure decreased [Unknown]
  - Condition aggravated [Unknown]
